FAERS Safety Report 6625828-9 (Version None)
Quarter: 2010Q1

REPORT INFORMATION
  Report Type: 
  Country: None (occurrence: None)
  Receive Date: 20100310
  Receipt Date: 20100226
  Transmission Date: 20100710
  Serious: Yes (Other)
  Sender: FDA-Public Use
  Company Number: ES-GENENTECH-298539

PATIENT
  Sex: Female
  Weight: 59 kg

DRUGS (1)
  1. MABTHERA [Suspect]
     Indication: RHEUMATOID ARTHRITIS
     Dosage: 1 G, Q15D
     Route: 042
     Dates: start: 20070430, end: 20090604

REACTIONS (1)
  - ABORTION SPONTANEOUS [None]
